FAERS Safety Report 23546108 (Version 1)
Quarter: 2024Q1

REPORT INFORMATION
  Report Type: Spontaneous
  Country: SE (occurrence: SE)
  Receive Date: 20240220
  Receipt Date: 20240220
  Transmission Date: 20240410
  Serious: Yes (Other)
  Sender: FDA-Public Use
  Company Number: SE-AMERICAN REGENT INC-2024000595

PATIENT
  Age: 31 Year
  Sex: Female
  Weight: 81 kg

DRUGS (5)
  1. FERINJECT [Suspect]
     Active Substance: FERRIC CARBOXYMALTOSE
     Indication: Anaemia
     Dosage: 1000 MILLIGRAM X 1
     Route: 042
     Dates: start: 20240202, end: 20240202
  2. OMEPRAZOLE [Concomitant]
     Active Substance: OMEPRAZOLE
     Indication: Product used for unknown indication
     Dosage: 1 X 1
     Route: 048
  3. ASACOL [Concomitant]
     Active Substance: MESALAMINE
     Indication: Product used for unknown indication
     Dosage: 1 X 1
     Route: 054
     Dates: start: 20231222
  4. PREDNISOLONE [Concomitant]
     Active Substance: PREDNISOLONE
     Indication: Product used for unknown indication
     Dosage: UNK
     Route: 054
     Dates: start: 20231222
  5. HYDROXOCOBALAMIN ALTERNOVA [Concomitant]
     Indication: Product used for unknown indication
     Dosage: UNK
     Route: 030
     Dates: start: 20240118

REACTIONS (2)
  - Maternal exposure during pregnancy [Unknown]
  - Blood pressure decreased [Recovered/Resolved]

NARRATIVE: CASE EVENT DATE: 20240202
